FAERS Safety Report 18479866 (Version 1)
Quarter: 2020Q4

REPORT INFORMATION
  Report Type: Spontaneous
  Country: US (occurrence: US)
  Receive Date: 20201108
  Receipt Date: 20201108
  Transmission Date: 20210114
  Serious: Yes (Other)
  Sender: FDA-Public Use
  Company Number: None

PATIENT
  Age: 50 Year
  Sex: Male
  Weight: 94.5 kg

DRUGS (5)
  1. VITAMIN D [Concomitant]
     Active Substance: VITAMIN D NOS
  2. THICK HAND SANITIZER [Suspect]
     Active Substance: ALCOHOL
     Indication: COVID-19 PROPHYLAXIS
     Dosage: ?          QUANTITY:1 PUMP;OTHER FREQUENCY:MULTIPLE TIMES PER;?
     Route: 061
     Dates: start: 20200302, end: 20201107
  3. ASPIRIN. [Concomitant]
     Active Substance: ASPIRIN
  4. ZINC. [Concomitant]
     Active Substance: ZINC
  5. VITAMIN C [Concomitant]
     Active Substance: ASCORBIC ACID

REACTIONS (2)
  - Blood alcohol increased [None]
  - Drug screen positive [None]

NARRATIVE: CASE EVENT DATE: 20201028
